FAERS Safety Report 16344189 (Version 1)
Quarter: 2019Q2

REPORT INFORMATION
  Report Type: Spontaneous
  Country: US (occurrence: US)
  Receive Date: 20190522
  Receipt Date: 20190522
  Transmission Date: 20190711
  Serious: No
  Sender: FDA-Public Use
  Company Number: US-TARO-2019TAR00333

PATIENT
  Sex: Female

DRUGS (1)
  1. TRETINOIN. [Suspect]
     Active Substance: TRETINOIN
     Dosage: UNK
     Route: 061
     Dates: start: 201904, end: 201904

REACTIONS (3)
  - Burning sensation [Not Recovered/Not Resolved]
  - Product substitution issue [Recovered/Resolved]
  - Oral disorder [Unknown]

NARRATIVE: CASE EVENT DATE: 201904
